FAERS Safety Report 4693700-X (Version None)
Quarter: 2005Q2

REPORT INFORMATION
  Report Type: 
  Country: None (occurrence: None)
  Receive Date: 20050615
  Receipt Date: 20050601
  Transmission Date: 20051028
  Serious: Yes (Hospitalization, Other)
  Sender: FDA-Public Use
  Company Number: US_0504116554

PATIENT
  Age: 69 Year
  Sex: Female
  Weight: 61 kg

DRUGS (7)
  1. FORTEO [Suspect]
     Indication: OSTEOPOROSIS
     Dosage: 20 UG DAY
     Dates: start: 20050321, end: 20050401
  2. CELECOXIB [Concomitant]
  3. ATENOLOL [Concomitant]
  4. CYANOCOBALAMIN [Concomitant]
  5. ACETAMINOPHEN [Concomitant]
  6. ASPIRIN [Concomitant]
  7. PREVACID [Concomitant]

REACTIONS (13)
  - ACUTE MYOCARDIAL INFARCTION [None]
  - ASTHENIA [None]
  - BLOOD CREATINE PHOSPHOKINASE INCREASED [None]
  - BLOOD UREA INCREASED [None]
  - FALL [None]
  - HEART RATE DECREASED [None]
  - NERVOUSNESS [None]
  - PHARMACEUTICAL PRODUCT COMPLAINT [None]
  - PHOTOPSIA [None]
  - STOMACH DISCOMFORT [None]
  - VASCULAR OCCLUSION [None]
  - VOMITING [None]
  - WHITE BLOOD CELLS URINE POSITIVE [None]
